FAERS Safety Report 4376711-3 (Version None)
Quarter: 2004Q2

REPORT INFORMATION
  Report Type: 
  Country: None (occurrence: None)
  Receive Date: 20040608
  Receipt Date: 20040525
  Transmission Date: 20050107
  Serious: Yes (Disabling)
  Sender: FDA-Public Use
  Company Number: 200404142

PATIENT
  Age: 65 Year
  Sex: Male

DRUGS (2)
  1. BOTOX PURIFIED NEUROTOXIN COMPLEX [Suspect]
     Indication: MUSCLE SPASMS
     Dosage: 100 UNITS PRN IM
     Route: 030
     Dates: start: 20040406, end: 20040406
  2. INTRATHECAL OPIOID [Concomitant]

REACTIONS (5)
  - CONDITION AGGRAVATED [None]
  - INTERVERTEBRAL DISC DISORDER [None]
  - NECK PAIN [None]
  - PAIN [None]
  - SKIN BURNING SENSATION [None]
